FAERS Safety Report 13938117 (Version 1)
Quarter: 2017Q3

REPORT INFORMATION
  Report Type: Spontaneous
  Country: CA (occurrence: CA)
  Receive Date: 20170905
  Receipt Date: 20170905
  Transmission Date: 20171127
  Serious: Yes (Death)
  Sender: FDA-Public Use
  Company Number: CA-ACTELION-A-US2017-158789

PATIENT
  Age: 76 Year
  Sex: Male

DRUGS (1)
  1. TRACLEER [Suspect]
     Active Substance: BOSENTAN
     Indication: PULMONARY ARTERIAL HYPERTENSION
     Dosage: 125 MG, BID
     Route: 048

REACTIONS (1)
  - Death [Fatal]

NARRATIVE: CASE EVENT DATE: 20170828
